FAERS Safety Report 6600136-0 (Version None)
Quarter: 2010Q1

REPORT INFORMATION
  Report Type: 
  Country: None (occurrence: None)
  Receive Date: 20100224
  Receipt Date: 20100223
  Transmission Date: 20100710
  Serious: Yes (Disabling)
  Sender: FDA-Public Use
  Company Number: A0845979A

PATIENT
  Age: 57 Year
  Sex: Female

DRUGS (7)
  1. SORIATANE [Suspect]
     Indication: ICHTHYOSIS
     Dosage: 125MG TWICE PER DAY
     Route: 048
     Dates: start: 19970101
  2. MORPHINE [Concomitant]
  3. GABAPENTIN [Concomitant]
  4. CLONAZEPAM [Concomitant]
  5. TIZANIDINE [Concomitant]
  6. DIPHENHYDRAMINE [Concomitant]
  7. HYDROXYZINE [Concomitant]

REACTIONS (8)
  - BLISTER [None]
  - CONDITION AGGRAVATED [None]
  - ICHTHYOSIS [None]
  - LIP DRY [None]
  - PAIN [None]
  - PRODUCT QUALITY ISSUE [None]
  - SKIN DISORDER [None]
  - SKIN EXFOLIATION [None]
